FAERS Safety Report 11067651 (Version 1)
Quarter: 2015Q2

REPORT INFORMATION
  Report Type: Spontaneous
  Country: GB (occurrence: GB)
  Receive Date: 20150427
  Receipt Date: 20150427
  Transmission Date: 20150821
  Serious: Yes (Other)
  Sender: FDA-Public Use
  Company Number: GB-DRREDDYS-GER/UKI/15/0047584

PATIENT
  Age: 37 Year
  Sex: Male
  Weight: 90.5 kg

DRUGS (5)
  1. MITRAZAPINE [Concomitant]
     Indication: DEPRESSION
     Route: 048
  2. ZAPONEX [Suspect]
     Active Substance: CLOZAPINE
     Indication: PRODUCT USED FOR UNKNOWN INDICATION
     Route: 048
     Dates: start: 20150324, end: 201504
  3. RISPERIDONE. [Suspect]
     Active Substance: RISPERIDONE
     Indication: PSYCHOTIC DISORDER
     Route: 048
  4. PROCYCLIDINE [Concomitant]
     Active Substance: PROCYCLIDINE
     Indication: PRODUCT USED FOR UNKNOWN INDICATION
     Route: 048
  5. ZAPONEX [Suspect]
     Active Substance: CLOZAPINE
     Route: 048
     Dates: start: 20150421

REACTIONS (7)
  - Blood creatine phosphokinase increased [Recovering/Resolving]
  - Dyspnoea [Unknown]
  - White blood cell count increased [Not Recovered/Not Resolved]
  - C-reactive protein increased [Unknown]
  - Neutrophil count increased [Not Recovered/Not Resolved]
  - Pain in extremity [Unknown]
  - Tachycardia [Recovered/Resolved]

NARRATIVE: CASE EVENT DATE: 20150407
